FAERS Safety Report 5910672-8 (Version None)
Quarter: 2008Q4

REPORT INFORMATION
  Report Type: 
  Country: None (occurrence: None)
  Receive Date: 20081007
  Receipt Date: 20080925
  Transmission Date: 20090506
  Serious: No
  Sender: FDA-Public Use
  Company Number: BR-ROCHE-588854

PATIENT

DRUGS (3)
  1. ROACUTAN [Suspect]
     Indication: ACNE
  2. ROACUTAN [Suspect]
     Dates: start: 20080901
  3. TETRALYSAL [Concomitant]
     Dosage: FREQUENCY - 1 MONTH

REACTIONS (2)
  - NO ADVERSE EVENT [None]
  - UNEVALUABLE EVENT [None]
